FAERS Safety Report 9008136 (Version 1)
Quarter: 2013Q1

REPORT INFORMATION
  Report Type: Spontaneous
  Country: US (occurrence: US)
  Receive Date: 20130111
  Receipt Date: 20130111
  Transmission Date: 20140127
  Serious: No
  Sender: FDA-Public Use
  Company Number: US-009507513-1301USA001726

PATIENT
  Age: 47 Year
  Sex: Female

DRUGS (10)
  1. INVANZ [Suspect]
     Indication: URINARY TRACT INFECTION
     Dosage: UNK, ONCE
     Route: 030
     Dates: start: 20130101
  2. AMBIEN [Concomitant]
     Dosage: 10 MG, QPM
  3. PERCOCET [Concomitant]
     Dosage: 20/650 MG EVERY 4 HOURS, PRN
  4. COUMADIN [Concomitant]
     Dosage: UNK MG, UNK
  5. COLACE [Concomitant]
  6. IRON (UNSPECIFIED) [Concomitant]
  7. SENNA [Concomitant]
  8. OXYCONTIN [Concomitant]
     Dosage: 30 MG, BID
  9. ZOLOFT [Concomitant]
  10. VALIUM [Concomitant]
     Dosage: 10 MG, TID

REACTIONS (5)
  - Local swelling [Unknown]
  - Erythema [Recovered/Resolved]
  - Nausea [Unknown]
  - Feeling hot [Unknown]
  - Pain in extremity [Not Recovered/Not Resolved]
